FAERS Safety Report 15009539 (Version 2)
Quarter: 2019Q4

REPORT INFORMATION
  Report Type: Spontaneous
  Country: US (occurrence: US)
  Receive Date: 20180614
  Receipt Date: 20191122
  Transmission Date: 20200122
  Serious: Yes (Other)
  Sender: FDA-Public Use
  Company Number: US-GILEAD-2018-0342793

PATIENT
  Sex: Male

DRUGS (2)
  1. FENTANYL                           /00174602/ [Concomitant]
     Active Substance: FENTANYL
     Indication: PAIN
  2. TRUVADA [Suspect]
     Active Substance: EMTRICITABINE\TENOFOVIR DISOPROXIL FUMARATE
     Indication: PROPHYLAXIS AGAINST HIV INFECTION
     Dosage: UNK
     Route: 065
     Dates: start: 2011

REACTIONS (6)
  - Hyperhidrosis [Unknown]
  - Pain [Unknown]
  - Middle insomnia [Unknown]
  - Feeling abnormal [Unknown]
  - Nocturia [Unknown]
  - Fanconi syndrome acquired [Unknown]
